FAERS Safety Report 24129931 (Version 1)
Quarter: 2024Q3

REPORT INFORMATION
  Report Type: Report from Study
  Country: US (occurrence: US)
  Receive Date: 20240724
  Receipt Date: 20240724
  Transmission Date: 20241017
  Serious: Yes (Death, Hospitalization, Other)
  Sender: AMNEAL
  Company Number: US-AMNEAL PHARMACEUTICALS-2024-AMRX-02648

PATIENT
  Sex: Male
  Weight: 73.016 kg

DRUGS (3)
  1. CARBIDOPA\LEVODOPA [Suspect]
     Active Substance: CARBIDOPA\LEVODOPA
     Indication: Parkinson^s disease
     Dosage: 48.75-195 MG, 2 CAPSULES, 3 /DAY
     Route: 048
  2. CARBIDOPA\LEVODOPA [Suspect]
     Active Substance: CARBIDOPA\LEVODOPA
     Dosage: 36.25/145 MG, 1 CAPSULE 3/DAY IN ADDITION TO 48.75-195 MG, 2 CAPSULES 3/DAY.
     Route: 048
     Dates: start: 20220811
  3. CARBIDOPA\LEVODOPA [Suspect]
     Active Substance: CARBIDOPA\LEVODOPA
     Dosage: 36.25/145 MG, 1 CAPSULE 3/DAY IN ADDITION TO 48.75-195 MG, 1 CAPSULE 3/DAY.
     Route: 048
     Dates: start: 20220811

REACTIONS (2)
  - Dementia [Fatal]
  - Parkinson^s disease [Fatal]
